FAERS Safety Report 13166609 (Version 1)
Quarter: 2017Q1

REPORT INFORMATION
  Report Type: Spontaneous
  Country: FR (occurrence: FR)
  Receive Date: 20170131
  Receipt Date: 20170131
  Transmission Date: 20170428
  Serious: Yes (Disabling, Other)
  Sender: FDA-Public Use
  Company Number: FR-AMGEN-FRASP2017013298

PATIENT
  Age: 31 Year
  Sex: Female

DRUGS (9)
  1. ZELITREX [Concomitant]
     Active Substance: VALACYCLOVIR HYDROCHLORIDE
     Dosage: 500 MG, BID
     Route: 048
     Dates: start: 201607
  2. LEDERFOLIN [Concomitant]
     Active Substance: LEUCOVORIN CALCIUM
     Dosage: 25 MG, 3.5714 MG, QWK
     Route: 048
     Dates: start: 201607
  3. BLINCYTO [Suspect]
     Active Substance: BLINATUMOMAB
     Dosage: 94 MUG, UNK
     Route: 042
     Dates: start: 20160920
  4. INEXIUM [Concomitant]
     Active Substance: ESOMEPRAZOLE
     Dosage: 40 MG, QD
     Route: 048
     Dates: start: 201607
  5. BLINCYTO [Suspect]
     Active Substance: BLINATUMOMAB
     Dosage: 94 MUG, UNK
     Route: 042
     Dates: start: 20161222
  6. BACTRIM [Concomitant]
     Active Substance: SULFAMETHOXAZOLE\TRIMETHOPRIM
     Dosage: 1 DF, 0.4286UNK, 3/WEEK
     Route: 048
     Dates: start: 201607
  7. BLINCYTO [Suspect]
     Active Substance: BLINATUMOMAB
     Indication: ACUTE LYMPHOCYTIC LEUKAEMIA
     Dosage: 94 MUG, UNK
     Route: 042
     Dates: start: 20160726
  8. BLINCYTO [Suspect]
     Active Substance: BLINATUMOMAB
     Dosage: 94 MUG, UNK
     Route: 042
     Dates: start: 20161103
  9. BLINCYTO [Suspect]
     Active Substance: BLINATUMOMAB
     Dosage: UNK
     Route: 042

REACTIONS (1)
  - Myalgia [Not Recovered/Not Resolved]

NARRATIVE: CASE EVENT DATE: 201612
